FAERS Safety Report 16726773 (Version 1)
Quarter: 2019Q3

REPORT INFORMATION
  Report Type: Spontaneous
  Country: US (occurrence: US)
  Receive Date: 20190821
  Receipt Date: 20190821
  Transmission Date: 20191005
  Serious: No
  Sender: FDA-Public Use
  Company Number: US-GE HEALTHCARE LIFE SCIENCES-2019CSU002761

PATIENT
  Age: 82 Year
  Sex: Male
  Weight: 68.03 kg

DRUGS (3)
  1. OMNIPAQUE [Suspect]
     Active Substance: IOHEXOL
     Indication: CEREBROVASCULAR ACCIDENT
  2. OMNIPAQUE [Suspect]
     Active Substance: IOHEXOL
     Indication: APHASIA
  3. OMNIPAQUE [Suspect]
     Active Substance: IOHEXOL
     Indication: COMPUTERISED TOMOGRAM HEAD
     Dosage: 180 ML, SINGLE
     Route: 042

REACTIONS (1)
  - Extravasation [Unknown]
